FAERS Safety Report 5674532-2 (Version None)
Quarter: 2008Q2

REPORT INFORMATION
  Report Type: 
  Country: None (occurrence: None)
  Receive Date: 20080303
  Receipt Date: 20070806
  Transmission Date: 20081010
  Serious: Yes (Other)
  Sender: FDA-Public Use
  Company Number: MK-6036811

PATIENT
  Age: 16 Year
  Sex: Male

DRUGS (1)
  1. AMNESTEEM [Suspect]
     Indication: ACNE CYSTIC
     Dosage: 40 MG;NULL_1_DAY;ORAL ; ORAL
     Route: 048

REACTIONS (1)
  - BLOOD TRIGLYCERIDES INCREASED [None]
